FAERS Safety Report 7645868-0 (Version None)
Quarter: 2011Q3

REPORT INFORMATION
  Report Type: 
  Country: None (occurrence: None)
  Receive Date: 20110729
  Receipt Date: 20110720
  Transmission Date: 20111222
  Serious: Yes (Other)
  Sender: FDA-Public Use
  Company Number: CH-GENENTECH-321961

PATIENT
  Sex: Male

DRUGS (4)
  1. CYCLOPHOSPHAMIDE [Suspect]
     Indication: BURKITT'S LYMPHOMA
     Dosage: UNK
     Route: 065
  2. MABTHERA [Suspect]
     Indication: BURKITT'S LYMPHOMA
     Dosage: UNK
     Route: 065
  3. METHOTREXATE [Suspect]
     Indication: BURKITT'S LYMPHOMA
     Dosage: UNK
     Route: 065
  4. CYTOSAR-U [Suspect]
     Indication: BURKITT'S LYMPHOMA
     Dosage: UNK
     Route: 037

REACTIONS (1)
  - DIPLOPIA [None]
